FAERS Safety Report 24434927 (Version 1)
Quarter: 2024Q4

REPORT INFORMATION
  Report Type: Spontaneous
  Country: CN (occurrence: CN)
  Receive Date: 20241014
  Receipt Date: 20241014
  Transmission Date: 20250115
  Serious: Yes (Hospitalization)
  Sender: BOEHRINGER INGELHEIM
  Company Number: CN-BoehringerIngelheim-2024-BI-056760

PATIENT
  Age: 88 Year
  Sex: Female
  Weight: 65.0 kg

DRUGS (1)
  1. PRADAXA [Suspect]
     Active Substance: DABIGATRAN ETEXILATE MESYLATE
     Indication: Cardiac valve disease
     Route: 048
     Dates: start: 20230511, end: 20241001

REACTIONS (3)
  - Haemorrhage subcutaneous [Recovering/Resolving]
  - Oedema peripheral [Recovering/Resolving]
  - Gastrointestinal haemorrhage [Recovering/Resolving]

NARRATIVE: CASE EVENT DATE: 20241001
